FAERS Safety Report 7677793-3 (Version None)
Quarter: 2011Q3

REPORT INFORMATION
  Report Type: 
  Country: None (occurrence: None)
  Receive Date: 20110811
  Receipt Date: 20110802
  Transmission Date: 20111222
  Serious: Yes (Other)
  Sender: FDA-Public Use
  Company Number: US-B.I. PHARMACEUTICALS,INC./RIDGEFIELD-2004-BP-09861BP

PATIENT
  Sex: Male

DRUGS (3)
  1. SINEMET CR [Concomitant]
  2. MIRAPEX [Suspect]
     Indication: PARKINSON'S DISEASE
     Dates: start: 19971110, end: 20030801
  3. MIRAPEX [Suspect]
     Dosage: 2.25 MG
     Dates: start: 20030901

REACTIONS (17)
  - FATIGUE [None]
  - PARADOXICAL DRUG REACTION [None]
  - SEXUAL ACTIVITY INCREASED [None]
  - DEPRESSION [None]
  - HYPERPHAGIA [None]
  - SOMNOLENCE [None]
  - INSOMNIA [None]
  - THERAPEUTIC RESPONSE DECREASED [None]
  - OEDEMA PERIPHERAL [None]
  - PSYCHOMOTOR HYPERACTIVITY [None]
  - ILLOGICAL THINKING [None]
  - ABNORMAL BEHAVIOUR [None]
  - PATHOLOGICAL GAMBLING [None]
  - WEIGHT INCREASED [None]
  - LIBIDO INCREASED [None]
  - ERECTILE DYSFUNCTION [None]
  - ANXIETY [None]
